FAERS Safety Report 17074896 (Version 2)
Quarter: 2020Q1

REPORT INFORMATION
  Report Type: Spontaneous
  Country: DE (occurrence: DE)
  Receive Date: 20191126
  Receipt Date: 20200110
  Transmission Date: 20200409
  Serious: Yes (Hospitalization, Other)
  Sender: FDA-Public Use
  Company Number: DE-FERRINGPH-2019FE07708

PATIENT
  Age: 32 Year
  Sex: Female

DRUGS (8)
  1. BREVACTID [Suspect]
     Active Substance: GONADOTROPHIN, CHORIONIC
     Indication: OVULATION INDUCTION
     Dosage: 750 IU, ONCE/SINGLE
     Route: 058
     Dates: start: 20190812, end: 20190812
  2. TRIPTOFEM [Suspect]
     Active Substance: TRIPTORELIN ACETATE
     Indication: OVULATION INDUCTION
     Dosage: 0.1 MG X2, ONCE/SINGLE
     Route: 058
     Dates: start: 20190811
  3. OVALEAP [Suspect]
     Active Substance: FOLLITROPIN
     Dosage: 225 IU, 1 TIME DAILY
     Route: 058
  4. OVALEAP [Suspect]
     Active Substance: FOLLITROPIN
     Indication: ASSISTED REPRODUCTIVE TECHNOLOGY
     Dosage: 625 IU, 1 TIME DAILY
     Route: 058
     Dates: end: 20190809
  5. ESTRIFAM                           /00442801/ [Suspect]
     Active Substance: ESTRADIOL\ESTRIOL
     Indication: ASSISTED REPRODUCTIVE TECHNOLOGY
     Dosage: 4 MG, 2 TIMES DAILY
     Route: 067
     Dates: start: 20190814
  6. OVALEAP [Suspect]
     Active Substance: FOLLITROPIN
     Dosage: 50 IU, 1 TIME DAILY
     Route: 058
     Dates: start: 20190801
  7. DUPHASTON [Suspect]
     Active Substance: DYDROGESTERONE
     Indication: ASSISTED REPRODUCTIVE TECHNOLOGY
     Dosage: 1.3 MG, 3 TIMES DAILY
     Route: 048
     Dates: start: 20190814
  8. ORGALUTRAN [Suspect]
     Active Substance: GANIRELIX ACETATE
     Indication: ASSISTED REPRODUCTIVE TECHNOLOGY
     Dosage: 0.25 MG, 1 TIME DAILY
     Route: 058
     Dates: start: 20190806, end: 20190810

REACTIONS (4)
  - Ovarian hyperstimulation syndrome [Recovered/Resolved]
  - Incorrect route of product administration [Unknown]
  - Product use in unapproved indication [Unknown]
  - Off label use [Unknown]

NARRATIVE: CASE EVENT DATE: 20190824
